FAERS Safety Report 16349806 (Version 1)
Quarter: 2019Q2

REPORT INFORMATION
  Report Type: Spontaneous
  Country: DE (occurrence: DE)
  Receive Date: 20190523
  Receipt Date: 20190523
  Transmission Date: 20190711
  Serious: Yes (Life-Threatening, Other)
  Sender: FDA-Public Use
  Company Number: PHHY2019DE118380

PATIENT
  Sex: Female
  Weight: 52 kg

DRUGS (6)
  1. BUSILVEX [Suspect]
     Active Substance: BUSULFAN
     Dosage: 200 MG, QD
     Route: 042
     Dates: start: 20181128
  2. BUSILVEX [Suspect]
     Active Substance: BUSULFAN
     Dosage: 160 MG, QD
     Route: 042
     Dates: start: 20181129
  3. BUSILVEX [Suspect]
     Active Substance: BUSULFAN
     Dosage: 180 MG, QD
     Route: 042
     Dates: start: 20181130, end: 20181130
  4. BUSILVEX [Suspect]
     Active Substance: BUSULFAN
     Indication: BONE MARROW CONDITIONING REGIMEN
     Dosage: 112 MG, QD
     Route: 042
     Dates: start: 20181127, end: 20181127
  5. FLUDARABINE [Suspect]
     Active Substance: FLUDARABINE PHOSPHATE
     Indication: BONE MARROW CONDITIONING REGIMEN
     Dosage: 46 MG, UNK
     Route: 042
     Dates: start: 20181127, end: 20181201
  6. THIOTEPA. [Suspect]
     Active Substance: THIOTEPA
     Indication: BONE MARROW CONDITIONING REGIMEN
     Dosage: 530 MG, QD
     Route: 042
     Dates: start: 20181202, end: 20181202

REACTIONS (1)
  - Venoocclusive liver disease [Recovered/Resolved]

NARRATIVE: CASE EVENT DATE: 20181206
